FAERS Safety Report 4460116-0 (Version None)
Quarter: 2004Q3

REPORT INFORMATION
  Report Type: 
  Country: None (occurrence: None)
  Receive Date: 20040928
  Receipt Date: 20031210
  Transmission Date: 20050211
  Serious: No
  Sender: FDA-Public Use
  Company Number: US-GLAXOSMITHKLINE-A0443386A

PATIENT
  Age: 68 Year
  Sex: Female

DRUGS (4)
  1. SEREVENT [Suspect]
     Indication: ASTHMA
     Dosage: 2PUFF TWICE PER DAY
     Route: 055
  2. PRILOSEC [Concomitant]
  3. LOZOL [Concomitant]
  4. VENTOLIN [Concomitant]
     Route: 055

REACTIONS (1)
  - COUGH [None]
